FAERS Safety Report 4360138-4 (Version None)
Quarter: 2004Q2

REPORT INFORMATION
  Report Type: 
  Country: None (occurrence: None)
  Receive Date: 20040519
  Receipt Date: 20030123
  Transmission Date: 20050107
  Serious: Yes (Hospitalization)
  Sender: FDA-Public Use
  Company Number: 200310358FR

PATIENT
  Age: 79 Year
  Sex: Male

DRUGS (5)
  1. ARAVA [Suspect]
     Indication: RHEUMATOID ARTHRITIS
     Route: 048
     Dates: start: 20011101, end: 20020423
  2. CORTANCYL [Concomitant]
     Route: 048
  3. COZAAR [Concomitant]
     Route: 048
  4. MOPRAL [Concomitant]
  5. NIFEDIPINE [Concomitant]
     Route: 048

REACTIONS (11)
  - ABNORMAL FAECES [None]
  - CONDITION AGGRAVATED [None]
  - DIZZINESS [None]
  - DYSAESTHESIA [None]
  - HYPOREFLEXIA [None]
  - PARAESTHESIA [None]
  - PERIPHERAL MOTOR NEUROPATHY [None]
  - PERIPHERAL SENSORY NEUROPATHY [None]
  - RED BLOOD CELL SEDIMENTATION RATE INCREASED [None]
  - SYNOVITIS [None]
  - VASCULITIS [None]
